FAERS Safety Report 10198561 (Version 1)
Quarter: 2014Q2

REPORT INFORMATION
  Report Type: Spontaneous
  Country: US (occurrence: US)
  Receive Date: 20140527
  Receipt Date: 20140527
  Transmission Date: 20141212
  Serious: No
  Sender: FDA-Public Use
  Company Number: US-NOVEN-13US007155

PATIENT
  Sex: Female

DRUGS (3)
  1. DAYTRANA [Suspect]
     Indication: ATTENTION DEFICIT/HYPERACTIVITY DISORDER
     Dosage: 10 MG, QD
     Route: 062
     Dates: start: 2013
  2. TRAZODONE [Concomitant]
     Indication: ABNORMAL BEHAVIOUR
     Route: 048
  3. RISPERDON [Concomitant]
     Indication: ABNORMAL BEHAVIOUR
     Route: 048

REACTIONS (3)
  - Drug prescribing error [Not Recovered/Not Resolved]
  - Off label use [Not Recovered/Not Resolved]
  - No adverse event [None]
